FAERS Safety Report 14181516 (Version 1)
Quarter: 2017Q4

REPORT INFORMATION
  Report Type: Spontaneous
  Country: GB (occurrence: GB)
  Receive Date: 20171112
  Receipt Date: 20171112
  Transmission Date: 20180321
  Serious: Yes (Hospitalization, Other)
  Sender: FDA-Public Use
  Company Number: GB-TEVA-823103ACC

PATIENT
  Age: 53 Year
  Sex: Female

DRUGS (2)
  1. NITROFURANTOIN. [Suspect]
     Active Substance: NITROFURANTOIN
     Indication: URINARY TRACT INFECTION
     Route: 048
     Dates: start: 20170920
  2. QUININE [Suspect]
     Active Substance: QUININE
     Indication: RESTLESS LEGS SYNDROME
     Route: 048
     Dates: start: 20170914

REACTIONS (2)
  - Thrombocytopenia [Unknown]
  - Contusion [Unknown]

NARRATIVE: CASE EVENT DATE: 20171020
